FAERS Safety Report 5331809-8 (Version None)
Quarter: 2007Q2

REPORT INFORMATION
  Report Type: 
  Country: None (occurrence: None)
  Receive Date: 20070518
  Receipt Date: 20070509
  Transmission Date: 20071010
  Serious: Yes (Hospitalization)
  Sender: FDA-Public Use
  Company Number: 20070126

PATIENT
  Age: 23 Year
  Sex: Female

DRUGS (2)
  1. VENOFER [Suspect]
     Indication: ANAEMIA
     Dosage: 300 MG INTRAVENOUS
     Route: 042
     Dates: start: 20070414, end: 20070414
  2. VENOFER [Suspect]
     Indication: ANAEMIA
     Dosage: 300 MG INTRAVENOUS
     Route: 042
     Dates: start: 20070416, end: 20070416

REACTIONS (1)
  - THROMBOPHLEBITIS [None]
